FAERS Safety Report 9183165 (Version 2)
Quarter: 2013Q1

REPORT INFORMATION
  Report Type: Spontaneous
  Country: US (occurrence: US)
  Receive Date: 20130322
  Receipt Date: 20130322
  Transmission Date: 20140127
  Serious: No
  Sender: FDA-Public Use
  Company Number: US-BRISTOL-MYERS SQUIBB COMPANY-16386369

PATIENT
  Age: 72 Year
  Sex: Female
  Weight: 57 kg

DRUGS (2)
  1. ERBITUX [Suspect]
     Indication: TONGUE NEOPLASM MALIGNANT STAGE UNSPECIFIED
     Dosage: THERAPY ON 05OCT11,RECEIVES EVERY THURSDAY,FOLLOWING SUNDAY SHE IS OUT OF IT
  2. HYDRATION [Suspect]
     Route: 042

REACTIONS (8)
  - Dry skin [Unknown]
  - Scab [Unknown]
  - Weight decreased [Unknown]
  - Erythema [Unknown]
  - Alopecia [Unknown]
  - Nail disorder [Unknown]
  - Haemorrhage [Unknown]
  - Fatigue [Unknown]
